FAERS Safety Report 11388639 (Version 4)
Quarter: 2017Q3

REPORT INFORMATION
  Report Type: Spontaneous
  Country: US (occurrence: US)
  Receive Date: 20150817
  Receipt Date: 20170907
  Transmission Date: 20171127
  Serious: No
  Sender: FDA-Public Use
  Company Number: US-PFIZER INC-2015268857

PATIENT
  Age: 85 Year
  Sex: Female

DRUGS (2)
  1. XALATAN [Suspect]
     Active Substance: LATANOPROST
     Indication: GLAUCOMA
     Dosage: 2 GTT, 1X/DAY (ONE DROP IN EACH EYE EVERY NIGHT)
     Route: 047
  2. LATANOPROST. [Suspect]
     Active Substance: LATANOPROST
     Indication: GLAUCOMA
     Dosage: 2 GTT, 1X/DAY (ONE DROP IN EACH EYE AT NIGHT )
     Route: 047

REACTIONS (6)
  - Drug administration error [Unknown]
  - Dizziness [Unknown]
  - Body height decreased [Unknown]
  - Musculoskeletal discomfort [Unknown]
  - Pruritus [Not Recovered/Not Resolved]
  - Product storage error [Unknown]
